FAERS Safety Report 9849851 (Version 1)
Quarter: 2014Q1

REPORT INFORMATION
  Report Type: Spontaneous
  Country: US (occurrence: None)
  Receive Date: 20140124
  Receipt Date: 20140124
  Transmission Date: 20141002
  Serious: Yes (Other)
  Sender: FDA-Public Use
  Company Number: None

PATIENT
  Age: 30 Year
  Sex: Male
  Weight: 90.72 kg

DRUGS (1)
  1. HALDOL [Suspect]
     Indication: HEADACHE
     Dates: start: 20140122

REACTIONS (4)
  - Tardive dyskinesia [None]
  - Heart rate irregular [None]
  - Insomnia [None]
  - Panic attack [None]
